FAERS Safety Report 8401478-9 (Version None)
Quarter: 2012Q2

REPORT INFORMATION
  Report Type: 
  Country: None (occurrence: None)
  Receive Date: 20120601
  Receipt Date: 20120531
  Transmission Date: 20120825
  Serious: Yes (Hospitalization)
  Sender: FDA-Public Use
  Company Number: PHHY2012IT025298

PATIENT
  Sex: Female

DRUGS (1)
  1. METHERGINE [Suspect]
     Dosage: 30 DRP, UNK
     Route: 048
     Dates: start: 20111002

REACTIONS (3)
  - DYSPNOEA [None]
  - FEELING HOT [None]
  - PALPITATIONS [None]
